FAERS Safety Report 8321846-3 (Version None)
Quarter: 2012Q2

REPORT INFORMATION
  Report Type: 
  Country: None (occurrence: None)
  Receive Date: 20120430
  Receipt Date: 20120425
  Transmission Date: 20120825
  Serious: Yes (Other)
  Sender: FDA-Public Use
  Company Number: JP-GLAXOSMITHKLINE-B0761047A

PATIENT
  Sex: Female

DRUGS (10)
  1. LITHIUM CARBONATE [Concomitant]
     Indication: BIPOLAR I DISORDER
     Dosage: 1200MG PER DAY
     Route: 048
  2. EMPYNASE [Concomitant]
     Route: 048
  3. COLONEL [Concomitant]
     Indication: CONSTIPATION
     Dosage: 1500MG PER DAY
     Route: 048
  4. FAMOTIDINE [Concomitant]
     Indication: GASTRITIS
     Dosage: 20MG PER DAY
     Route: 048
  5. LAMICTAL [Suspect]
     Indication: BIPOLAR I DISORDER
     Dosage: 50MG PER DAY
     Route: 048
     Dates: start: 20110917, end: 20110930
  6. AMOBAN [Concomitant]
     Indication: BIPOLAR I DISORDER
     Dosage: 2MG PER DAY
     Route: 048
  7. LAMICTAL [Suspect]
     Dosage: 100MG PER DAY
     Route: 048
     Dates: start: 20111001, end: 20111022
  8. FLOMOX [Concomitant]
     Route: 048
  9. SILECE [Concomitant]
     Indication: BIPOLAR I DISORDER
     Dosage: 2MG PER DAY
     Route: 048
  10. LOXONIN [Concomitant]
     Route: 048

REACTIONS (16)
  - TOXIC EPIDERMAL NECROLYSIS [None]
  - ORAL DISORDER [None]
  - DRUG ERUPTION [None]
  - GENERALISED ERYTHEMA [None]
  - BLISTER [None]
  - ERYTHEMA [None]
  - LIP EROSION [None]
  - SKIN EROSION [None]
  - LICHEN PLANUS [None]
  - ORAL MUCOSAL ERUPTION [None]
  - URTICARIA [None]
  - SINUSITIS [None]
  - PYREXIA [None]
  - RASH MACULO-PAPULAR [None]
  - SKIN SWELLING [None]
  - SKIN EXFOLIATION [None]
